FAERS Safety Report 5174057-7 (Version None)
Quarter: 2006Q4

REPORT INFORMATION
  Report Type: 
  Country: None (occurrence: None)
  Receive Date: 20061206
  Receipt Date: 20061120
  Transmission Date: 20070319
  Serious: Yes (Hospitalization)
  Sender: FDA-Public Use
  Company Number: US-2006-015045

PATIENT
  Age: 46 Year
  Sex: Male
  Weight: 110 kg

DRUGS (9)
  1. BETASERON [Suspect]
     Indication: RELAPSING-REMITTING MULTIPLE SCLEROSIS
     Dosage: 8 MIU, EVERY 2D, SUBCUTANEOUS
     Route: 058
     Dates: start: 20051108, end: 20060608
  2. ALCOHOL (ETHANOL) [Suspect]
     Dosage: 20 DRINKS/WK TO 0.875 L/D WODKA, ORAL
     Route: 048
     Dates: end: 20060601
  3. HYDROCHLOROTHIAZIDE [Concomitant]
  4. LISINOPRIL [Concomitant]
  5. CORTICOSTEROIDS [Concomitant]
  6. ZANTAC [Concomitant]
  7. PROTONIX [Concomitant]
  8. MULTIVITAMIN [Concomitant]
  9. SYNTHROID [Concomitant]

REACTIONS (14)
  - ABDOMINAL DISTENSION [None]
  - ACUTE HEPATIC FAILURE [None]
  - ALCOHOLISM [None]
  - ANAEMIA [None]
  - DEPRESSION [None]
  - DILATATION VENTRICULAR [None]
  - HEPATIC CIRRHOSIS [None]
  - HEPATIC STEATOSIS [None]
  - HEPATITIS ALCOHOLIC [None]
  - HYPOKALAEMIA [None]
  - OEDEMA PERIPHERAL [None]
  - SELF-MEDICATION [None]
  - SLEEP DISORDER [None]
  - WAIST CIRCUMFERENCE INCREASED [None]
